FAERS Safety Report 7125717-X (Version None)
Quarter: 2010Q4

REPORT INFORMATION
  Report Type: 
  Country: None (occurrence: None)
  Receive Date: 20101129
  Receipt Date: 20101115
  Transmission Date: 20110411
  Serious: Yes (Death, Hospitalization, Other)
  Sender: FDA-Public Use
  Company Number: B0619613A

PATIENT
  Sex: Female
  Weight: 78 kg

DRUGS (2)
  1. PAZOPANIB [Suspect]
     Indication: SARCOMA
     Dosage: 800MG PER DAY
     Route: 048
     Dates: start: 20091023, end: 20091218
  2. MOXIFLOXACIN [Concomitant]
     Indication: LUNG INFECTION
     Dosage: 400MG FOUR TIMES PER DAY
     Route: 048
     Dates: start: 20091215, end: 20091217

REACTIONS (8)
  - CARDIAC TAMPONADE [None]
  - CARDIOMEGALY [None]
  - FATIGUE [None]
  - HEPATIC FAILURE [None]
  - LUNG INFECTION [None]
  - PERICARDIAL EFFUSION [None]
  - PLEURAL EFFUSION [None]
  - RENAL FAILURE [None]
